FAERS Safety Report 5311598-3 (Version None)
Quarter: 2007Q1

REPORT INFORMATION
  Report Type: 
  Country: None (occurrence: None)
  Receive Date: 20070201
  Receipt Date: 20061215
  Transmission Date: 20070707
  Serious: No
  Sender: FDA-Public Use
  Company Number: 259553

PATIENT
  Age: 5 Year
  Sex: Male
  Weight: 19.5 kg

DRUGS (2)
  1. LEVEMIR [Suspect]
     Indication: DIABETES MELLITUS INSULIN-DEPENDENT
     Dosage: 4 IU, QD, SUBCUTANEOUS
     Route: 058
  2. NOVOLOG [Concomitant]

REACTIONS (2)
  - HYPERHIDROSIS [None]
  - INSOMNIA [None]
